FAERS Safety Report 12290692 (Version 2)
Quarter: 2016Q2

REPORT INFORMATION
  Report Type: Spontaneous
  Country: US (occurrence: US)
  Receive Date: 20160421
  Receipt Date: 20160502
  Transmission Date: 20160815
  Serious: No
  Sender: FDA-Public Use
  Company Number: US-PFIZER INC-2016201707

PATIENT
  Age: 78 Year
  Sex: Female
  Weight: 61.23 kg

DRUGS (8)
  1. IBRANCE [Suspect]
     Active Substance: PALBOCICLIB
     Indication: BREAST CANCER STAGE IV
     Dosage: 125 MG, CYCLIC (DAYS 1-21 OF 28 DAY CYCLE)
     Route: 048
     Dates: start: 20160117
  2. FASLODEX [Suspect]
     Active Substance: FULVESTRANT
     Dosage: 500 MG, CYCLIC (D1, 15,29, THEN Q4 WEEKS)
     Route: 030
     Dates: start: 20160108
  3. CHOLECALCIFEROL [Concomitant]
     Active Substance: CHOLECALCIFEROL
     Dosage: 800 IU, DAILY (2 TABLET (OF 400 UNITS)
     Route: 048
  4. POLYETHYLENE GLYCOL 3350. [Concomitant]
     Active Substance: POLYETHYLENE GLYCOL 3350
     Dosage: 1 PACK DAILY)
     Route: 048
  5. ACETAMINOPHEN. [Concomitant]
     Active Substance: ACETAMINOPHEN
     Dosage: 650 MG, AS NEEDED
     Route: 048
  6. CALCIUM CARBONATE. [Concomitant]
     Active Substance: CALCIUM CARBONATE
     Dosage: 1000 MG, 2X/DAY
     Route: 048
  7. COMPAZINE [Concomitant]
     Active Substance: PROCHLORPERAZINE MALEATE
     Dosage: 5 MG, AS NEEDED (FOUR TIMES A DAY PRN)
     Route: 048
  8. FULVESTRANT [Suspect]
     Active Substance: FULVESTRANT
     Indication: HORMONE THERAPY
     Dosage: 500 MG, MONTHLY
     Dates: start: 201601

REACTIONS (10)
  - Insomnia [Unknown]
  - Diarrhoea [Unknown]
  - Peripheral swelling [Unknown]
  - Blood count abnormal [Unknown]
  - Weight increased [Unknown]
  - Dizziness [Recovered/Resolved]
  - White blood cell count decreased [Unknown]
  - Laceration [Not Recovered/Not Resolved]
  - Impaired healing [Unknown]
  - Nausea [Unknown]

NARRATIVE: CASE EVENT DATE: 20160121
